FAERS Safety Report 21599286 (Version 1)
Quarter: 2022Q4

REPORT INFORMATION
  Report Type: Spontaneous
  Country: US (occurrence: None)
  Receive Date: 20221114
  Receipt Date: 20221114
  Transmission Date: 20230112
  Serious: No
  Sender: FDA-Public Use
  Company Number: None

PATIENT
  Age: 67 Year
  Sex: Female
  Weight: 57.2 kg

DRUGS (17)
  1. VERZENIO [Suspect]
     Active Substance: ABEMACICLIB
     Indication: Breast cancer
     Dosage: FREQUENCY : TWICE A DAY;?
     Route: 048
     Dates: start: 202210, end: 202210
  2. ALLOPURINOL [Concomitant]
     Active Substance: ALLOPURINOL
  3. ASPIRIN [Concomitant]
     Active Substance: ASPIRIN
  4. BUSPIRONE [Concomitant]
     Active Substance: BUSPIRONE HYDROCHLORIDE
  5. CALCIUM\VITAMIN D [Concomitant]
     Active Substance: CALCIUM\VITAMIN D
  6. COLACE [Concomitant]
     Active Substance: DOCUSATE SODIUM
  7. FERROUS SULFATE [Concomitant]
     Active Substance: FERROUS SULFATE
  8. GABAPENTIN [Concomitant]
     Active Substance: GABAPENTIN
  9. DIPHENHYDRAMINE [Concomitant]
     Active Substance: DIPHENHYDRAMINE
  10. LETROZOLE [Concomitant]
     Active Substance: LETROZOLE
  11. LOPERAMIDE [Concomitant]
     Active Substance: LOPERAMIDE
  12. OXYCODONE [Concomitant]
     Active Substance: OXYCODONE
  13. ROXICODONE [Concomitant]
     Active Substance: OXYCODONE HYDROCHLORIDE
  14. MELATONIN [Concomitant]
     Active Substance: MELATONIN
  15. VITAMINS [Concomitant]
     Active Substance: VITAMINS
  16. XGEVA [Concomitant]
     Active Substance: DENOSUMAB
  17. ZOFRAN [Suspect]
     Active Substance: ONDANSETRON HYDROCHLORIDE

REACTIONS (2)
  - Full blood count abnormal [None]
  - Therapy interrupted [None]
